FAERS Safety Report 14367547 (Version 1)
Quarter: 2018Q1

REPORT INFORMATION
  Report Type: Report from Study
  Country: GB (occurrence: GB)
  Receive Date: 20180109
  Receipt Date: 20180109
  Transmission Date: 20180509
  Serious: Yes (Hospitalization)
  Sender: FDA-Public Use
  Company Number: GB-JNJFOC-20180104083

PATIENT
  Age: 48 Year
  Sex: Female
  Weight: 101.8 kg

DRUGS (18)
  1. HYDROXYZINE [Concomitant]
     Active Substance: HYDROXYZINE HYDROCHLORIDE
     Route: 065
     Dates: start: 20120807, end: 20170715
  2. LANSOPRAZOLE. [Concomitant]
     Active Substance: LANSOPRAZOLE
     Route: 065
     Dates: start: 20130325
  3. SUMATRIPTAN. [Concomitant]
     Active Substance: SUMATRIPTAN
     Route: 065
     Dates: start: 20151215, end: 20170715
  4. STELARA [Suspect]
     Active Substance: USTEKINUMAB
     Indication: PSORIASIS
     Route: 058
     Dates: start: 20130206
  5. TRAMADOL. [Concomitant]
     Active Substance: TRAMADOL
     Route: 065
     Dates: start: 20130122
  6. METHOTREXATE. [Concomitant]
     Active Substance: METHOTREXATE
     Route: 065
     Dates: start: 20141113
  7. AMLODIPINE [Concomitant]
     Active Substance: AMLODIPINE BESYLATE
     Route: 065
     Dates: start: 20070423
  8. OMEPRAZOLE. [Concomitant]
     Active Substance: OMEPRAZOLE
     Route: 065
     Dates: start: 20121231, end: 20170715
  9. LOPERAMIDE [Concomitant]
     Active Substance: LOPERAMIDE
     Route: 065
     Dates: start: 20130717, end: 20170715
  10. AMITRIPTYLINE [Concomitant]
     Active Substance: AMITRIPTYLINE
     Route: 065
     Dates: start: 20141024
  11. PARACETAMOL [Concomitant]
     Active Substance: ACETAMINOPHEN
     Route: 065
     Dates: start: 20130122
  12. SIMVASTATIN. [Concomitant]
     Active Substance: SIMVASTATIN
     Route: 065
     Dates: start: 20130325
  13. MAXOLON [Concomitant]
     Active Substance: METOCLOPRAMIDE HYDROCHLORIDE
     Route: 065
     Dates: start: 20130717, end: 20170715
  14. LISINOPRIL. [Concomitant]
     Active Substance: LISINOPRIL
     Route: 065
     Dates: start: 20070423
  15. METFORMIN [Concomitant]
     Active Substance: METFORMIN HYDROCHLORIDE
     Route: 065
     Dates: start: 20110915
  16. CLARITHROMYCIN. [Concomitant]
     Active Substance: CLARITHROMYCIN
     Route: 065
     Dates: start: 20170915, end: 20170920
  17. CLOPIDOGREL [Concomitant]
     Active Substance: CLOPIDOGREL BISULFATE
     Route: 065
     Dates: start: 20160104
  18. ATORVASTATIN [Concomitant]
     Active Substance: ATORVASTATIN
     Route: 065
     Dates: start: 20160111

REACTIONS (2)
  - Migraine [Recovered/Resolved]
  - Cerebral ischaemia [Unknown]

NARRATIVE: CASE EVENT DATE: 20171217
